FAERS Safety Report 9660533 (Version 1)
Quarter: 2013Q4

REPORT INFORMATION
  Report Type: Spontaneous
  Country: CA (occurrence: CA)
  Receive Date: 20131031
  Receipt Date: 20131031
  Transmission Date: 20140711
  Serious: Yes (Hospitalization, Other)
  Sender: FDA-Public Use
  Company Number: CA-BRISTOL-MYERS SQUIBB COMPANY-19626340

PATIENT
  Age: 74 Year
  Sex: Female
  Weight: 69.84 kg

DRUGS (4)
  1. ELIQUIS [Suspect]
  2. SOTALOL [Concomitant]
  3. LIPITOR [Concomitant]
  4. ZANTAC [Concomitant]

REACTIONS (2)
  - Medical device removal [Unknown]
  - Haematoma [Unknown]
